FAERS Safety Report 7897021-3 (Version None)
Quarter: 2011Q4

REPORT INFORMATION
  Report Type: 
  Country: None (occurrence: None)
  Receive Date: 20111107
  Receipt Date: 20111102
  Transmission Date: 20120403
  Serious: No
  Sender: FDA-Public Use
  Company Number: US-PFIZER INC-2011268963

PATIENT

DRUGS (3)
  1. CYCLOBENZAPRINE [Concomitant]
     Dosage: UNK
  2. PRISTIQ [Suspect]
     Dosage: 50 MG, 1X/DAY
  3. IBUPROFEN [Concomitant]
     Dosage: UNK

REACTIONS (2)
  - DYSKINESIA [None]
  - TIC [None]
